FAERS Safety Report 4892716-8 (Version None)
Quarter: 2006Q1

REPORT INFORMATION
  Report Type: 
  Country: None (occurrence: None)
  Receive Date: 20060126
  Receipt Date: 20060120
  Transmission Date: 20060701
  Serious: Yes (Hospitalization)
  Sender: FDA-Public Use
  Company Number: JP-AVENTIS-200610208JP

PATIENT
  Age: 82 Year
  Sex: Male

DRUGS (4)
  1. KETEK [Suspect]
     Indication: NASOPHARYNGITIS
     Dosage: DOSE: 900-1200; DOSE UNIT: MILLIGRAM PER 24 HOURS
     Route: 048
     Dates: start: 20060105, end: 20060106
  2. HUSTAZOL [Concomitant]
     Route: 048
     Dates: start: 20060105, end: 20060106
  3. BISOLVON [Concomitant]
     Route: 048
     Dates: start: 20060105, end: 20060106
  4. CODEINE PHOSPHATE [Concomitant]
     Route: 048
     Dates: start: 20060105, end: 20060106

REACTIONS (5)
  - FACE OEDEMA [None]
  - HAEMATURIA [None]
  - PLEURAL EFFUSION [None]
  - PROTEINURIA [None]
  - WHEEZING [None]
